FAERS Safety Report 10561320 (Version 5)
Quarter: 2016Q1

REPORT INFORMATION
  Report Type: Report from Study
  Country: US (occurrence: US)
  Receive Date: 20141103
  Receipt Date: 20160303
  Transmission Date: 20160525
  Serious: Yes (Hospitalization, Other)
  Sender: FDA-Public Use
  Company Number: US-SA-2014SA138381

PATIENT
  Age: 49 Year
  Sex: Female

DRUGS (3)
  1. AUBAGIO [Suspect]
     Active Substance: TERIFLUNOMIDE
     Indication: RELAPSING-REMITTING MULTIPLE SCLEROSIS
     Route: 048
     Dates: start: 20141014, end: 20141021
  2. AUBAGIO [Suspect]
     Active Substance: TERIFLUNOMIDE
     Indication: RELAPSING-REMITTING MULTIPLE SCLEROSIS
     Route: 048
     Dates: start: 20140826
  3. AUBAGIO [Suspect]
     Active Substance: TERIFLUNOMIDE
     Indication: RELAPSING-REMITTING MULTIPLE SCLEROSIS
     Route: 048
     Dates: start: 201512

REACTIONS (8)
  - Diarrhoea [Recovered/Resolved]
  - Nausea [Recovering/Resolving]
  - Headache [Recovered/Resolved]
  - Alopecia [Not Recovered/Not Resolved]
  - Vomiting [Unknown]
  - Dyspnoea [Recovering/Resolving]
  - Swelling [Not Recovered/Not Resolved]
  - Multiple sclerosis relapse [Unknown]
